FAERS Safety Report 11393685 (Version 2)
Quarter: 2015Q4

REPORT INFORMATION
  Report Type: Spontaneous
  Country: CA (occurrence: CA)
  Receive Date: 20150819
  Receipt Date: 20151002
  Transmission Date: 20160304
  Serious: Yes (Hospitalization)
  Sender: FDA-Public Use
  Company Number: CA-BEH-2015053020

PATIENT
  Age: 90 Year
  Sex: Female
  Weight: 51.5 kg

DRUGS (1)
  1. PRIVIGEN [Suspect]
     Active Substance: HUMAN IMMUNOGLOBULIN G
     Indication: HYPOGAMMAGLOBULINAEMIA
     Dosage: PRESCRIBED 30 G MONTHLY; ONLY 1/2 FRACTION OF 20 G ADMINISTERED. 120ML X 30MIN
     Route: 042
     Dates: start: 20150707, end: 20150707

REACTIONS (9)
  - Hypoaesthesia oral [Recovered/Resolved]
  - Haemolysis [Recovered/Resolved]
  - Hypotension [Recovered/Resolved]
  - Chills [Recovered/Resolved]
  - Hypoaesthesia [Recovered/Resolved]
  - Anaphylactoid reaction [Recovered/Resolved]
  - Bradycardia [Recovered/Resolved]
  - Livedo reticularis [Unknown]
  - Bradycardia [Unknown]

NARRATIVE: CASE EVENT DATE: 20150707
